FAERS Safety Report 9799463 (Version 1)
Quarter: 2014Q1

REPORT INFORMATION
  Report Type: Spontaneous
  Country: US (occurrence: None)
  Receive Date: 20140103
  Receipt Date: 20140103
  Transmission Date: 20141002
  Serious: Yes (Other)
  Sender: FDA-Public Use
  Company Number: None

PATIENT
  Sex: Male

DRUGS (2)
  1. XTANDI 40MG [Suspect]
     Indication: PROSTATE CANCER
     Route: 048
     Dates: start: 20130322, end: 20131217
  2. LUPRON DEPOT [Concomitant]

REACTIONS (1)
  - Disease progression [None]
